FAERS Safety Report 6265679-0 (Version None)
Quarter: 2009Q3

REPORT INFORMATION
  Report Type: 
  Country: None (occurrence: None)
  Receive Date: 20090713
  Receipt Date: 20090708
  Transmission Date: 20100115
  Serious: Yes (Hospitalization, Other)
  Sender: FDA-Public Use
  Company Number: GR-PFIZER INC-2009233064

PATIENT
  Age: 40 Year

DRUGS (9)
  1. MEDROL [Suspect]
     Dosage: 32 MG, 1X/DAY
     Route: 048
  2. OLMESARTAN MEDOXOMIL [Suspect]
     Dosage: 20 MG, UNK
     Route: 048
  3. AZATHIOPRINE [Suspect]
     Dosage: 100 MG, 1X/DAY
  4. TINZAPARIN SODIUM [Suspect]
     Dosage: 14.000 IU, 1X/DAY
  5. FUROSEMIDE [Suspect]
     Dosage: 40 MG, 1X/DAY
  6. ATENOLOL [Suspect]
     Dosage: 25 MG, 1X/DAY
  7. PRIMIDONE [Suspect]
     Dosage: 375 MG, 1X/DAY
  8. CALCIUM CARBONATE [Suspect]
     Dosage: 500 MG, 1X/DAY
  9. CALCIDOL [Suspect]
     Dosage: UNK

REACTIONS (4)
  - DEEP VEIN THROMBOSIS [None]
  - GLOMERULONEPHRITIS MEMBRANOUS [None]
  - HYPERLIPIDAEMIA [None]
  - HYPERTENSION [None]
